FAERS Safety Report 6220647-X (Version None)
Quarter: 2009Q2

REPORT INFORMATION
  Report Type: 
  Country: None (occurrence: None)
  Receive Date: 20090610
  Receipt Date: 20090602
  Transmission Date: 20091009
  Serious: Yes (Other)
  Sender: FDA-Public Use
  Company Number: US-BIOGENIDEC-2009BI013609

PATIENT
  Age: 37 Year
  Sex: Female

DRUGS (1)
  1. TYSABRI [Suspect]
     Indication: MULTIPLE SCLEROSIS
     Route: 042
     Dates: start: 20090324

REACTIONS (6)
  - BLOOD PRESSURE DECREASED [None]
  - CONVULSION [None]
  - HEADACHE [None]
  - OPTIC NEURITIS [None]
  - TREMOR [None]
  - VISION BLURRED [None]
